FAERS Safety Report 8820521 (Version 1)
Quarter: 2012Q4

REPORT INFORMATION
  Report Type: 
  Country: CA (occurrence: CA)
  Receive Date: 20121002
  Receipt Date: 20121002
  Transmission Date: 20130627
  Serious: Yes (Other)
  Sender: FDA-Public Use
  Company Number: CA-B.I. PHARMACEUTICALS,INC./RIDGEFIELD-2012-CN-01966CN

PATIENT
  Age: 70 Year
  Sex: Male

DRUGS (2)
  1. PRADAX [Suspect]
     Indication: CEREBROVASCULAR ACCIDENT PROPHYLAXIS
     Dosage: 300 mg
  2. PRADAX [Suspect]
     Indication: ATRIAL FIBRILLATION

REACTIONS (1)
  - Transient ischaemic attack [Recovered/Resolved]
